FAERS Safety Report 21015362 (Version 6)
Quarter: 2025Q2

REPORT INFORMATION
  Report Type: Report from Study
  Country: DE (occurrence: DE)
  Receive Date: 20220628
  Receipt Date: 20250520
  Transmission Date: 20250717
  Serious: Yes (Hospitalization, Other)
  Sender: TAKEDA
  Company Number: DE-TAKEDA-2022TUS041949

PATIENT
  Age: 38 Year
  Sex: Male

DRUGS (15)
  1. TEDUGLUTIDE [Suspect]
     Active Substance: TEDUGLUTIDE
     Indication: Short-bowel syndrome
     Dosage: 4 MILLIGRAM, QD
     Dates: start: 20150719, end: 20200909
  2. TEDUGLUTIDE [Suspect]
     Active Substance: TEDUGLUTIDE
     Dosage: 3.2 MILLIGRAM, QD
     Dates: start: 20200909, end: 20221205
  3. TEDUGLUTIDE [Suspect]
     Active Substance: TEDUGLUTIDE
  4. TEDUGLUTIDE [Suspect]
     Active Substance: TEDUGLUTIDE
  5. PSYLLIUM [Concomitant]
     Active Substance: PLANTAGO SEED
     Indication: Diarrhoea
     Dosage: UNK UNK, BID
     Dates: start: 202109
  6. FOLIC ACID [Concomitant]
     Active Substance: FOLIC ACID
     Indication: Vitamin supplementation
     Dosage: 5 MILLIGRAM, QOD
     Dates: start: 201707
  7. MAGNESIUM [Concomitant]
     Active Substance: MAGNESIUM
     Indication: Mineral supplementation
     Dosage: UNK UNK, QD
     Dates: start: 2016
  8. Aplona [Concomitant]
     Indication: Diarrhoea
  9. ZINC [Concomitant]
     Active Substance: ZINC
     Indication: Supplementation therapy
     Dosage: 25 MILLIGRAM, QD
     Dates: start: 201610
  10. SELENIUM [Concomitant]
     Active Substance: SELENIUM
     Indication: Supplementation therapy
     Dosage: 100 MICROGRAM, QD
     Dates: start: 201610
  11. SODIUM BICARBONATE [Concomitant]
     Active Substance: SODIUM BICARBONATE
     Indication: Metabolic acidosis
  12. ETORICOXIB [Concomitant]
     Active Substance: ETORICOXIB
     Indication: Serositis
     Dosage: 90 MILLIGRAM, QD
     Dates: start: 202107
  13. ETORICOXIB [Concomitant]
     Active Substance: ETORICOXIB
     Indication: Rheumatoid arthritis
  14. FERRIC MALTOL [Concomitant]
     Active Substance: FERRIC MALTOL
     Indication: Anaemia
     Dosage: 30 MILLIGRAM, BID
     Dates: start: 202003
  15. SODIUM BICARBONATE [Concomitant]
     Active Substance: SODIUM BICARBONATE
     Indication: Metabolic acidosis

REACTIONS (1)
  - Enterocutaneous fistula [Recovered/Resolved]

NARRATIVE: CASE EVENT DATE: 20220421
